FAERS Safety Report 20016039 (Version 1)
Quarter: 2021Q4

REPORT INFORMATION
  Report Type: Spontaneous
  Country: US (occurrence: None)
  Receive Date: 20211102
  Receipt Date: 20211102
  Transmission Date: 20220303
  Serious: Yes (Life-Threatening, Disabling, Other)
  Sender: FDA-Public Use
  Company Number: None

PATIENT
  Age: 37 Year
  Sex: Female
  Weight: 85.5 kg

DRUGS (6)
  1. CETIRIZINE HCL [Suspect]
     Active Substance: CETIRIZINE HYDROCHLORIDE
     Indication: Multiple allergies
     Dosage: OTHER QUANTITY : 1 TABLET(S);?FREQUENCY : DAILY;?
     Route: 048
     Dates: start: 20211004, end: 20211017
  2. SPIRONOLACTONE [Concomitant]
     Active Substance: SPIRONOLACTONE
  3. RIZATRIPTAN [Concomitant]
     Active Substance: RIZATRIPTAN
  4. BENZOIC ACID [Concomitant]
     Active Substance: BENZOIC ACID
  5. iron supp [Concomitant]
  6. vitamin e supp [Concomitant]

REACTIONS (2)
  - Depression [None]
  - Mental disorder [None]

NARRATIVE: CASE EVENT DATE: 20211004
